FAERS Safety Report 23953414 (Version 4)
Quarter: 2024Q3

REPORT INFORMATION
  Report Type: Spontaneous
  Country: AU (occurrence: AU)
  Receive Date: 20240608
  Receipt Date: 20240726
  Transmission Date: 20241016
  Serious: Yes (Hospitalization)
  Sender: ABBVIE
  Company Number: AU-ABBVIE-5789719

PATIENT
  Age: 31 Year
  Sex: Female

DRUGS (1)
  1. DAPSONE [Suspect]
     Active Substance: DAPSONE
     Indication: Product used for unknown indication
     Route: 065

REACTIONS (3)
  - Hypotension [Unknown]
  - Rash maculo-papular [Unknown]
  - Pyrexia [Unknown]

NARRATIVE: CASE EVENT DATE: 20240408
